FAERS Safety Report 9604482 (Version 2)
Quarter: 2013Q4

REPORT INFORMATION
  Report Type: Report from Study
  Country: HK (occurrence: HK)
  Receive Date: 20131008
  Receipt Date: 20131021
  Transmission Date: 20140711
  Serious: Yes (Other)
  Sender: FDA-Public Use
  Company Number: HK-PFIZER INC-2013285193

PATIENT
  Age: 45 Year
  Sex: Female
  Weight: 46.4 kg

DRUGS (4)
  1. CRIZOTINIB [Suspect]
     Indication: NON-SMALL CELL LUNG CANCER
     Dosage: 250 MG, 2X/DAY
     Dates: start: 20130611, end: 20131002
  2. MAGNESIUM TRISILICATE MIXTURE [Concomitant]
     Indication: ERUCTATION
     Dosage: UNK
     Route: 048
     Dates: start: 20130806, end: 20130930
  3. MAGNESIUM TRISILICATE MIXTURE [Concomitant]
     Indication: GASTROOESOPHAGEAL REFLUX DISEASE
  4. METOCLOPRAMIDE HYDROCHLORIDE [Concomitant]
     Indication: VOMITING
     Dosage: UNK
     Route: 048
     Dates: start: 20130806, end: 20130930

REACTIONS (1)
  - Atrioventricular block [Recovered/Resolved]
